FAERS Safety Report 4446770-8 (Version None)
Quarter: 2004Q3

REPORT INFORMATION
  Report Type: 
  Country: None (occurrence: None)
  Receive Date: 20040910
  Receipt Date: 20040826
  Transmission Date: 20050211
  Serious: Yes (Hospitalization)
  Sender: FDA-Public Use
  Company Number: S04-USA-05888-01

PATIENT
  Age: 80 Year
  Sex: Female

DRUGS (2)
  1. LEXAPRO [Suspect]
     Indication: DEPRESSION
     Dosage: 10 MG QD PO
     Route: 048
     Dates: start: 20040701
  2. SINEMET [Concomitant]
     Indication: PARKINSON'S DISEASE

REACTIONS (4)
  - CONFUSIONAL STATE [None]
  - DRUG INTERACTION [None]
  - FALL [None]
  - MENTAL STATUS CHANGES [None]
